FAERS Safety Report 10898840 (Version 3)
Quarter: 2015Q2

REPORT INFORMATION
  Report Type: Report from Study
  Country: FR (occurrence: FR)
  Receive Date: 20150309
  Receipt Date: 20150406
  Transmission Date: 20150821
  Serious: Yes (Hospitalization)
  Sender: FDA-Public Use
  Company Number: PHHO2015FR003028

PATIENT
  Age: 4 Year
  Sex: Female

DRUGS (3)
  1. VINBLASTINE SULFATE. [Suspect]
     Active Substance: VINBLASTINE SULFATE
     Indication: GLIOMA
     Dosage: 3 MG/M2, QD
     Route: 042
     Dates: start: 20150210, end: 20150217
  2. AMN107 [Suspect]
     Active Substance: NILOTINIB
     Indication: GLIOMA
     Dosage: 175 MG/M2, BID
     Route: 048
     Dates: start: 20150210, end: 20150222
  3. AMN107 [Suspect]
     Active Substance: NILOTINIB
     Indication: ASTROCYTOMA

REACTIONS (3)
  - Febrile neutropenia [Not Recovered/Not Resolved]
  - Hypertension [Not Recovered/Not Resolved]
  - Seizure [Not Recovered/Not Resolved]

NARRATIVE: CASE EVENT DATE: 20150223
